FAERS Safety Report 17286041 (Version 1)
Quarter: 2020Q1

REPORT INFORMATION
  Report Type: Spontaneous
  Country: US (occurrence: US)
  Receive Date: 20200118
  Receipt Date: 20200118
  Transmission Date: 20200409
  Serious: Yes (Life-Threatening, Hospitalization, Other)
  Sender: FDA-Public Use
  Company Number: US-AUROBINDO-AUR-APL-2020-002567

PATIENT
  Age: 41 Year
  Sex: Male

DRUGS (1)
  1. LOPERAMIDE TABLET [Suspect]
     Active Substance: LOPERAMIDE
     Indication: DRUG USE DISORDER
     Dosage: 200 DOSAGE FORM, ONCE A DAY
     Route: 065

REACTIONS (7)
  - Tachyarrhythmia [Recovering/Resolving]
  - Cardiotoxicity [Recovering/Resolving]
  - Drug abuse [Unknown]
  - Ventricular fibrillation [Recovering/Resolving]
  - Torsade de pointes [Recovering/Resolving]
  - Cardiac arrest [Recovering/Resolving]
  - Overdose [Recovering/Resolving]
